FAERS Safety Report 10219497 (Version 1)
Quarter: 2014Q2

REPORT INFORMATION
  Report Type: Spontaneous
  Country: AU (occurrence: None)
  Receive Date: 20140603
  Receipt Date: 20140603
  Transmission Date: 20141212
  Serious: Yes (Other)
  Sender: FDA-Public Use
  Company Number: 2014P1004593

PATIENT
  Age: 17 Year
  Sex: Female

DRUGS (3)
  1. LAMOTRIGINE [Suspect]
     Dosage: X1
  2. DROPERIDOL [Suspect]
     Indication: SEDATION
     Route: 030
  3. DROPERIDOL [Suspect]
     Indication: PATIENT RESTRAINT
     Route: 030

REACTIONS (3)
  - Overdose [None]
  - Bradycardia [None]
  - Electrocardiogram QT prolonged [None]
